FAERS Safety Report 20155470 (Version 1)
Quarter: 2021Q4

REPORT INFORMATION
  Report Type: Spontaneous
  Country: US (occurrence: US)
  Receive Date: 20211207
  Receipt Date: 20211207
  Transmission Date: 20220303
  Serious: No
  Sender: FDA-Public Use
  Company Number: US-drreddys-SPO/USA/21/0144436

PATIENT
  Age: 96 Year
  Sex: Female

DRUGS (2)
  1. PRAVASTATIN [Suspect]
     Active Substance: PRAVASTATIN
     Indication: Product used for unknown indication
  2. PRAVASTATIN [Suspect]
     Active Substance: PRAVASTATIN
     Dosage: CVS

REACTIONS (3)
  - Disorientation [Unknown]
  - Mania [Unknown]
  - Vomiting [Unknown]
